FAERS Safety Report 24121090 (Version 1)
Quarter: 2024Q3

REPORT INFORMATION
  Report Type: Spontaneous
  Country: IL (occurrence: IL)
  Receive Date: 20240722
  Receipt Date: 20240722
  Transmission Date: 20241017
  Serious: Yes (Other)
  Sender: MERCK
  Company Number: IL-009507513-2407ISR011528

PATIENT
  Age: 29 Year
  Sex: Male

DRUGS (1)
  1. KEYTRUDA [Suspect]
     Active Substance: PEMBROLIZUMAB
     Dosage: UNK

REACTIONS (3)
  - Pneumonitis [Unknown]
  - Bronchiolitis [Unknown]
  - Eosinophilia [Unknown]
